FAERS Safety Report 12509414 (Version 5)
Quarter: 2016Q4

REPORT INFORMATION
  Report Type: Spontaneous
  Country: US (occurrence: US)
  Receive Date: 20160629
  Receipt Date: 20161207
  Transmission Date: 20170207
  Serious: Yes (Hospitalization, Other)
  Sender: FDA-Public Use
  Company Number: US-PFIZER INC-2016320481

PATIENT
  Age: 49 Year
  Sex: Female
  Weight: 77.11 kg

DRUGS (12)
  1. FIORICET [Concomitant]
     Active Substance: ACETAMINOPHEN\BUTALBITAL\CAFFEINE
     Indication: MIGRAINE
     Dosage: [BUTALBITAL 50MG]/[CAFFEINE 325MG]/[PARACETAMOL 40MG] ONE TABLET THREE TIMES DAILY
     Route: 048
     Dates: start: 2010
  2. PRAVASTATIN. [Concomitant]
     Active Substance: PRAVASTATIN
     Indication: BLOOD CHOLESTEROL ABNORMAL
     Dosage: 20MG TABLET, ONE TABLET AT BEDTIME
     Route: 048
     Dates: start: 20160622
  3. PRILOSEC [Concomitant]
     Active Substance: OMEPRAZOLE MAGNESIUM
     Indication: GASTROOESOPHAGEAL REFLUX DISEASE
     Dosage: 20MG CAPSULE, 1 CAPSULE DAILY
     Route: 048
  4. XANAX [Concomitant]
     Active Substance: ALPRAZOLAM
     Indication: ANXIETY
     Dosage: 0.5MG TABLET AT BEDTIME AS NEEDED
     Route: 048
  5. ONE-A-DAY [Concomitant]
     Indication: VITAMIN SUPPLEMENTATION
     Dosage: 1 DF, DAILY
     Route: 048
  6. LYRICA [Suspect]
     Active Substance: PREGABALIN
     Dosage: 75 MG, UNK
  7. LYRICA [Suspect]
     Active Substance: PREGABALIN
     Dosage: 150MG  TWICE DAILY
     Route: 048
  8. BAYER ASPIRIN [Concomitant]
     Active Substance: ASPIRIN
     Indication: HAEMATOLOGY TEST ABNORMAL
     Dosage: 81 MG, DAILY
     Route: 048
     Dates: start: 201606
  9. LISINOPRIL. [Concomitant]
     Active Substance: LISINOPRIL
     Indication: HYPERTENSION
     Dosage: 40MG TABLET. 1/2 TABLET IN MORNING AND 1/2 TABLET IN EVENING
     Route: 048
  10. FISH OIL [Concomitant]
     Active Substance: FISH OIL
     Indication: PROPHYLAXIS
     Dosage: 1 DF, DAILY
     Route: 048
  11. LYRICA [Suspect]
     Active Substance: PREGABALIN
     Indication: FIBROMYALGIA
     Dosage: 50MG TABLETS, 2 TABLETS TWICE DAILY
     Route: 048
  12. LYRICA [Suspect]
     Active Substance: PREGABALIN
     Dosage: 150 MG, 3X/DAY
     Dates: start: 2014

REACTIONS (11)
  - Paralysis [Unknown]
  - Drug effect incomplete [Unknown]
  - Muscular weakness [Recovering/Resolving]
  - Cerebrovascular accident [Recovered/Resolved with Sequelae]
  - Off label use [Unknown]
  - Amnesia [Not Recovered/Not Resolved]
  - Facial paralysis [Unknown]
  - Transient ischaemic attack [Recovered/Resolved with Sequelae]
  - Hemiparesis [Unknown]
  - Taciturnity [Unknown]
  - Dysarthria [Unknown]

NARRATIVE: CASE EVENT DATE: 2014
